FAERS Safety Report 4478638-5 (Version None)
Quarter: 2004Q3

REPORT INFORMATION
  Report Type: 
  Country: None (occurrence: None)
  Receive Date: 20040923
  Receipt Date: 20040526
  Transmission Date: 20050211
  Serious: Yes (Hospitalization)
  Sender: FDA-Public Use
  Company Number: 206803

PATIENT
  Age: 49 Year
  Sex: Male

DRUGS (4)
  1. AVASTIN [Suspect]
     Indication: DRUG USE FOR UNKNOWN INDICATION
     Dosage: 475 MG, INTRAVENOUS
     Route: 042
     Dates: start: 20040329
  2. FLUOROURACIL [Suspect]
     Indication: DRUG USE FOR UNKNOWN INDICATION
     Dosage: INTRAVENOUS
     Route: 042
     Dates: start: 20040329
  3. FUDR [Concomitant]
  4. OXALIPLATIN [Concomitant]

REACTIONS (3)
  - DIARRHOEA [None]
  - GASTRIC ULCER [None]
  - STOMATITIS [None]
